FAERS Safety Report 8426410-3 (Version None)
Quarter: 2012Q2

REPORT INFORMATION
  Report Type: 
  Country: None (occurrence: None)
  Receive Date: 20120611
  Receipt Date: 20120531
  Transmission Date: 20120825
  Serious: Yes (Other)
  Sender: FDA-Public Use
  Company Number: GB-SANOFI-AVENTIS-2012SA039108

PATIENT
  Age: 70 Year
  Sex: Female
  Weight: 69.8 kg

DRUGS (9)
  1. CAPSAICIN [Concomitant]
     Route: 065
     Dates: start: 20120404, end: 20120502
  2. BISOPROLOL FUMARATE [Concomitant]
     Route: 065
     Dates: start: 20120217
  3. DRONEDARONE HCL [Suspect]
     Route: 065
  4. AMITRIPTYLINE HYDROCHLORIDE [Concomitant]
     Route: 065
     Dates: start: 20120217
  5. LANSOPRAZOLE [Concomitant]
     Route: 065
     Dates: start: 20120217
  6. TIOCONAZOLE [Concomitant]
     Route: 065
     Dates: start: 20120217
  7. WARFARIN SODIUM [Concomitant]
     Route: 065
     Dates: start: 20120221
  8. BENDROFLUMETHIAZIDE [Concomitant]
     Route: 065
     Dates: start: 20120217
  9. ATORVASTATIN CALCIUM [Concomitant]
     Route: 065
     Dates: start: 20120217

REACTIONS (1)
  - LETHARGY [None]
